FAERS Safety Report 10682005 (Version 3)
Quarter: 2015Q1

REPORT INFORMATION
  Report Type: Spontaneous
  Country: AT (occurrence: None)
  Receive Date: 20141224
  Receipt Date: 20150316
  Transmission Date: 20150720
  Serious: Yes (Other)
  Sender: FDA-Public Use
  Company Number: 2014-21001

PATIENT
  Age: 65 Year
  Sex: Female

DRUGS (1)
  1. EYLEA [Suspect]
     Active Substance: AFLIBERCEPT
     Indication: PRODUCT USED FOR UNKNOWN INDICATION
     Dates: start: 20141209

REACTIONS (5)
  - Visual acuity reduced [None]
  - Vitreous haemorrhage [None]
  - Blindness unilateral [None]
  - Vitreous opacities [None]
  - Off label use [None]

NARRATIVE: CASE EVENT DATE: 201412
